FAERS Safety Report 18490726 (Version 1)
Quarter: 2020Q4

REPORT INFORMATION
  Report Type: Spontaneous
  Country: JP (occurrence: JP)
  Receive Date: 20201111
  Receipt Date: 20201111
  Transmission Date: 20210114
  Serious: Yes (Other)
  Sender: FDA-Public Use
  Company Number: JP-ASTRAZENECA-2019SF29766

PATIENT
  Age: 41 Year
  Sex: Female

DRUGS (4)
  1. LYNPARZA [Suspect]
     Active Substance: OLAPARIB
     Indication: BREAST CANCER
     Route: 048
  2. URSO [Concomitant]
     Active Substance: URSODIOL
     Route: 065
  3. LYNPARZA [Suspect]
     Active Substance: OLAPARIB
     Indication: BREAST CANCER
     Route: 048
  4. LYNPARZA [Suspect]
     Active Substance: OLAPARIB
     Indication: BREAST CANCER
     Route: 048

REACTIONS (4)
  - Breast cancer recurrent [Unknown]
  - Headache [Recovered/Resolved]
  - Anaemia [Recovered/Resolved]
  - Hepatic function abnormal [Recovered/Resolved]
